FAERS Safety Report 6644418-5 (Version None)
Quarter: 2010Q1

REPORT INFORMATION
  Report Type: 
  Country: None (occurrence: None)
  Receive Date: 20100322
  Receipt Date: 20100311
  Transmission Date: 20100710
  Serious: Yes (Hospitalization)
  Sender: FDA-Public Use
  Company Number: US-ROCHE-688359

PATIENT
  Age: 68 Year
  Sex: Female

DRUGS (5)
  1. TRASTUZUMAB [Suspect]
     Indication: BREAST CANCER
     Dosage: MOST RECENT DOSE 26 SEPTEMBER 2008, ROUTE FROM PROTOCOL
     Route: 042
  2. BEVACIZUMAB [Suspect]
     Indication: BREAST CANCER
     Dosage: MOST RECENT DOSE ON 22 AUGUST  2008.  FREQUENCY AND ROUTE AS PER PROTOCOL.
     Route: 042
  3. EPIRUBICIN [Suspect]
     Indication: BREAST CANCER
     Dosage: ROUTE, WERE TAKEN FROM CLINICAL TRIAL PROTOCOL, MOST RECENT DOSE ON 27 JUNE 2008
     Route: 042
  4. CYCLOPHOSPHAMIDE [Suspect]
     Indication: BREAST CANCER
     Dosage: ROUTE,  WERE TAKEN FROM CLINICAL TRIAL PROTOCOL, MOST RECENT DOSE ON 27 JUNE 2008
     Route: 042
  5. DOCETAXEL [Suspect]
     Indication: BREAST CANCER
     Dosage: ROUTE FROM PROTOCOL, MOST RECENT DOSE ON 22 AUGUST 2008
     Route: 042

REACTIONS (6)
  - BONE PAIN [None]
  - INFECTION [None]
  - MYALGIA [None]
  - PAIN IN EXTREMITY [None]
  - PERIPHERAL MOTOR NEUROPATHY [None]
  - PYREXIA [None]
